FAERS Safety Report 7377929-8 (Version None)
Quarter: 2011Q1

REPORT INFORMATION
  Report Type: 
  Country: None (occurrence: None)
  Receive Date: 20110328
  Receipt Date: 20110323
  Transmission Date: 20110831
  Serious: No
  Sender: FDA-Public Use
  Company Number: US-TEVA-273080USA

PATIENT
  Sex: Female

DRUGS (4)
  1. BIRTH CONTROL [Concomitant]
     Indication: CONTRACEPTION
  2. SERTRALINE HYDROCHLORIDE [Concomitant]
     Indication: OBSESSIVE-COMPULSIVE DISORDER
  3. LACTULOSE [Concomitant]
     Indication: CONSTIPATION
  4. PLAN B ONE-STEP [Suspect]
     Indication: POST COITAL CONTRACEPTION
     Route: 048
     Dates: start: 20110307, end: 20110307

REACTIONS (1)
  - MENSTRUATION IRREGULAR [None]
